FAERS Safety Report 16026894 (Version 1)
Quarter: 2019Q1

REPORT INFORMATION
  Report Type: Other
  Country: SA (occurrence: SA)
  Receive Date: 20190303
  Receipt Date: 20190303
  Transmission Date: 20190418
  Serious: Yes (Disabling)
  Sender: FDA-Public Use
  Company Number: SA-B. BRAUN MEDICAL INC.-2063475

PATIENT
  Age: 41 Year
  Sex: Female

DRUGS (6)
  1. STEROIDS [Concomitant]
     Active Substance: UNSPECIFIED INGREDIENT
     Route: 048
  2. ANTI MUSCARINIC AGENT [Concomitant]
     Route: 055
  3. CEFUROXIME FOR INJECTION USP AND DEXTROSE INJECTION USP [Suspect]
     Active Substance: CEFUROXIME SODIUM
  4. BETA 2 AGONIST [Concomitant]
     Route: 055
  5. INHALED STEROID [Concomitant]
     Route: 055
  6. AZITHROMYCIN ANHYDROUS. [Concomitant]
     Active Substance: AZITHROMYCIN ANHYDROUS

REACTIONS (2)
  - Stevens-Johnson syndrome [None]
  - Obliterative bronchiolitis [None]
